FAERS Safety Report 8318887-9 (Version None)
Quarter: 2012Q2

REPORT INFORMATION
  Report Type: 
  Country: None (occurrence: None)
  Receive Date: 20120427
  Receipt Date: 20120419
  Transmission Date: 20120825
  Serious: Yes (Hospitalization, Other)
  Sender: FDA-Public Use
  Company Number: FR-PFIZER INC-2011SA027462

PATIENT
  Age: 56 Year
  Sex: Female

DRUGS (7)
  1. EPIRUBICIN HYDROCHLORIDE [Suspect]
     Indication: BREAST CANCER
     Dosage: 170 MG, CYCLIC
     Route: 042
     Dates: start: 20101220, end: 20101220
  2. ZELITREX [Concomitant]
     Dosage: UNK
  3. OLMESARTAN MEDOXOMIL [Concomitant]
     Dosage: UNK
  4. CYCLOPHOSPHAMIDE [Suspect]
     Indication: BREAST CANCER
     Dosage: 820 MG, CYCLIC
     Route: 042
     Dates: start: 20101220, end: 20101220
  5. ATARAX [Concomitant]
     Dosage: UNK
  6. HERBAL PREPARATION [Concomitant]
     Dosage: UNK
  7. FLUOROURACIL [Suspect]
     Indication: BREAST CANCER
     Dosage: 160 MG, CYCLIC
     Route: 042
     Dates: start: 20101220, end: 20101220

REACTIONS (3)
  - CEREBROVASCULAR ACCIDENT [None]
  - PARAESTHESIA [None]
  - MUCOSAL INFLAMMATION [None]
